FAERS Safety Report 6380374-5 (Version None)
Quarter: 2009Q3

REPORT INFORMATION
  Report Type: 
  Country: None (occurrence: None)
  Receive Date: 20090929
  Receipt Date: 20090916
  Transmission Date: 20100115
  Serious: No
  Sender: FDA-Public Use
  Company Number: US-B.I. PHARMACEUTICALS,INC./RIDGEFIELD-2009-BP-11002BP

PATIENT
  Sex: Male

DRUGS (9)
  1. SPIRIVA [Suspect]
     Indication: DYSPNOEA
     Dosage: 18 MCG
     Route: 055
     Dates: start: 20090101, end: 20090801
  2. FLOVENT [Concomitant]
     Indication: DYSPNOEA
     Dosage: 4 PUF
     Route: 055
     Dates: start: 20090101, end: 20090801
  3. PLAVIX [Concomitant]
     Indication: MYOCARDIAL INFARCTION
     Dates: start: 20090101
  4. ZOCOR [Concomitant]
     Indication: MYOCARDIAL INFARCTION
     Dates: start: 20090101
  5. METFORMIN HCL [Concomitant]
     Indication: PROPHYLAXIS
     Dates: start: 20090101
  6. ASPIRIN [Concomitant]
     Indication: MYOCARDIAL INFARCTION
     Dosage: 81 MG
     Dates: start: 20090101
  7. ZOLOFT [Concomitant]
     Dates: start: 20090101
  8. NITROGLYCERIN [Concomitant]
     Indication: MYOCARDIAL INFARCTION
     Dates: start: 20090101
  9. BUMETANIDE [Concomitant]
     Indication: MYOCARDIAL INFARCTION
     Dates: start: 20090101

REACTIONS (6)
  - DRUG INTERACTION [None]
  - HAEMORRHAGE [None]
  - PRURITUS [None]
  - PURULENT DISCHARGE [None]
  - RASH GENERALISED [None]
  - VOCAL CORD DISORDER [None]
